FAERS Safety Report 9760338 (Version 2)
Quarter: 2013Q4

REPORT INFORMATION
  Report Type: Spontaneous
  Country: US (occurrence: US)
  Receive Date: 20131216
  Receipt Date: 20131216
  Transmission Date: 20140711
  Serious: No
  Sender: FDA-Public Use
  Company Number: US-GILEAD-2010-0028412

PATIENT
  Age: 58 Year
  Sex: Female

DRUGS (6)
  1. LETAIRIS [Suspect]
     Indication: PULMONARY ARTERIAL HYPERTENSION
     Route: 048
     Dates: start: 20080528
  2. TYVASO [Concomitant]
  3. CARTIA XT [Concomitant]
  4. LEVOTHYROXINE [Concomitant]
  5. FUROSEMIDE [Concomitant]
  6. PANTOPRAZOLE [Concomitant]

REACTIONS (2)
  - Gastritis [Unknown]
  - Gastrointestinal haemorrhage [Unknown]
